FAERS Safety Report 18882753 (Version 1)
Quarter: 2021Q1

REPORT INFORMATION
  Report Type: Report from Study
  Country: US (occurrence: US)
  Receive Date: 20210211
  Receipt Date: 20210211
  Transmission Date: 20210420
  Serious: Yes (Hospitalization)
  Sender: FDA-Public Use
  Company Number: US-BAUSCH-BL-2021-004655

PATIENT
  Age: 64 Year
  Sex: Female

DRUGS (6)
  1. LACTULOSE. [Suspect]
     Active Substance: LACTULOSE
     Indication: HEPATIC CIRRHOSIS
     Dosage: TAPERED OFF DOSE
     Route: 048
     Dates: start: 2020, end: 202009
  2. LACTULOSE. [Suspect]
     Active Substance: LACTULOSE
     Indication: HEPATIC STEATOSIS
     Route: 048
     Dates: end: 2020
  3. XIFAXAN [Suspect]
     Active Substance: RIFAXIMIN
     Indication: HEPATIC STEATOSIS
     Route: 048
     Dates: start: 201710, end: 2020
  4. XIFAXAN [Suspect]
     Active Substance: RIFAXIMIN
     Indication: HEPATIC CIRRHOSIS
     Dosage: TAPERED OFF DOSE
     Route: 048
     Dates: start: 2020, end: 202009
  5. LACTULOSE. [Suspect]
     Active Substance: LACTULOSE
     Dosage: RE?STARTED AS PRESCRIBED
     Route: 048
     Dates: start: 202009
  6. XIFAXAN [Suspect]
     Active Substance: RIFAXIMIN
     Dosage: RE?STARTED AS PRESCRIBED
     Route: 048
     Dates: start: 202009

REACTIONS (10)
  - Iron deficiency [Unknown]
  - Abdominal discomfort [Unknown]
  - Decreased appetite [Unknown]
  - Pyrexia [Unknown]
  - Night sweats [Unknown]
  - Lymphocyte count decreased [Unknown]
  - Haemoglobin decreased [Unknown]
  - Dehydration [Unknown]
  - Asthenia [Unknown]
  - White blood cell count decreased [Unknown]

NARRATIVE: CASE EVENT DATE: 2020
